FAERS Safety Report 5361651-3 (Version None)
Quarter: 2007Q2

REPORT INFORMATION
  Report Type: 
  Country: None (occurrence: None)
  Receive Date: 20070615
  Receipt Date: 20070615
  Transmission Date: 20071010
  Serious: Yes (Hospitalization)
  Sender: FDA-Public Use
  Company Number: None

PATIENT
  Sex: Male
  Weight: 78.0187 kg

DRUGS (8)
  1. CETUXIMAB [Suspect]
     Indication: PANCREATIC CARCINOMA
     Dosage: 492MG IV
     Route: 042
     Dates: start: 20070531
  2. GEMCITABINE HCL [Suspect]
     Indication: PANCREATIC CARCINOMA
     Dosage: 492MG IV
     Route: 042
     Dates: start: 20070531
  3. OXALIPLATIN [Suspect]
     Indication: PANCREATIC CARCINOMA
     Dosage: 197MG IV
     Route: 042
     Dates: start: 20070525
  4. CLONAZEPAM [Concomitant]
  5. AVODART [Concomitant]
  6. NEXIUM [Concomitant]
  7. ZYRTEC [Concomitant]
  8. PAXIL [Concomitant]

REACTIONS (4)
  - CENTRAL LINE INFECTION [None]
  - INFUSION SITE ERYTHEMA [None]
  - INFUSION SITE INDURATION [None]
  - INFUSION SITE PAIN [None]
